FAERS Safety Report 21646775 (Version 1)
Quarter: 2022Q4

REPORT INFORMATION
  Report Type: Spontaneous
  Country: SI (occurrence: SI)
  Receive Date: 20221127
  Receipt Date: 20221127
  Transmission Date: 20230112
  Serious: Yes (Other)
  Sender: FDA-Public Use
  Company Number: None

PATIENT
  Age: 51 Year
  Sex: Female

DRUGS (4)
  1. DOXORUBICIN [Suspect]
     Active Substance: DOXORUBICIN
     Indication: Breast cancer
     Dosage: FORM STRENGTH : 2 MG/ML , UNIT DOSE : 20.5 MG , DURATION : 78 DAYS
     Dates: start: 20220214, end: 20220503
  2. Analgin [Concomitant]
     Indication: Pain
  3. THYMUS [Concomitant]
     Active Substance: HUMAN THYMUS\THYMUS
     Indication: Product used for unknown indication
  4. ZALDIAR [Concomitant]
     Active Substance: ACETAMINOPHEN\TRAMADOL HYDROCHLORIDE
     Indication: Pain

REACTIONS (3)
  - Neutropenia [Not Recovered/Not Resolved]
  - Aspartate aminotransferase increased [Not Recovered/Not Resolved]
  - Alanine aminotransferase increased [Not Recovered/Not Resolved]

NARRATIVE: CASE EVENT DATE: 20220308
